FAERS Safety Report 6357303-3 (Version None)
Quarter: 2009Q3

REPORT INFORMATION
  Report Type: 
  Country: None (occurrence: None)
  Receive Date: 20090916
  Receipt Date: 20090908
  Transmission Date: 20100115
  Serious: Yes (Hospitalization)
  Sender: FDA-Public Use
  Company Number: PHHY2009IE38323

PATIENT
  Age: 8 Year
  Sex: Female

DRUGS (3)
  1. GLEEVEC [Suspect]
     Indication: ACUTE LYMPHOCYTIC LEUKAEMIA
     Dosage: 300 MG/M2, UNK
  2. MERCAPTOPURINE [Concomitant]
  3. DEXAMETHASONE [Concomitant]

REACTIONS (8)
  - ASTHENIA [None]
  - CACHEXIA [None]
  - COUGH [None]
  - HAEMOGLOBIN DECREASED [None]
  - LETHARGY [None]
  - MUCOSAL INFLAMMATION [None]
  - MYALGIA [None]
  - PRODUCTIVE COUGH [None]
